FAERS Safety Report 6077707-6 (Version None)
Quarter: 2009Q1

REPORT INFORMATION
  Report Type: 
  Country: None (occurrence: None)
  Receive Date: 20090211
  Receipt Date: 20090206
  Transmission Date: 20090719
  Serious: Yes (Life-Threatening, Hospitalization)
  Sender: FDA-Public Use
  Company Number: 6047571

PATIENT
  Age: 68 Year
  Sex: Female

DRUGS (2)
  1. BISOPROLOL FUMARATE [Suspect]
     Indication: DRUG USE FOR UNKNOWN INDICATION
     Dosage: 2 DOSAGE FORMS (1 DOSAGE FORMS, 2 IN 1 D)
     Route: 048
     Dates: start: 20071209
  2. ACTILYSE         (SOLUTION FOR INJECTION)       (ALTEPLASE) [Suspect]
     Indication: CEREBROVASCULAR ACCIDENT
     Dosage: NOT REPORTED (NOT-REPORTED)
     Route: 042
     Dates: start: 20071216, end: 20071216

REACTIONS (2)
  - HYPOTENSION [None]
  - ISCHAEMIC STROKE [None]
